FAERS Safety Report 5520893-4 (Version None)
Quarter: 2007Q4

REPORT INFORMATION
  Report Type: 
  Country: None (occurrence: None)
  Receive Date: 20071119
  Receipt Date: 20071112
  Transmission Date: 20080405
  Serious: Yes (Other)
  Sender: FDA-Public Use
  Company Number: B0495847A

PATIENT
  Age: 43 Year
  Sex: Female

DRUGS (4)
  1. FLUTICASONE PROPIONATE [Suspect]
     Indication: BRONCHIAL OBSTRUCTION
     Dosage: 1PUFF TWICE PER DAY
     Route: 065
     Dates: start: 20070501, end: 20070501
  2. SALMETEROL [Suspect]
     Indication: BRONCHIAL OBSTRUCTION
     Dosage: 1PUFF TWICE PER DAY
     Route: 065
     Dates: start: 20070501, end: 20070501
  3. TREPIBUTONE [Concomitant]
     Route: 065
  4. BROMAZEPAM [Concomitant]
     Route: 065

REACTIONS (2)
  - MALAISE [None]
  - TONGUE OEDEMA [None]
